FAERS Safety Report 14904882 (Version 1)
Quarter: 2018Q2

REPORT INFORMATION
  Report Type: Spontaneous
  Country: US (occurrence: US)
  Receive Date: 20180517
  Receipt Date: 20180517
  Transmission Date: 20180711
  Serious: No
  Sender: FDA-Public Use
  Company Number: US-SA-2017SA195328

PATIENT
  Sex: Female

DRUGS (2)
  1. SOLOSTAR [Suspect]
     Active Substance: DEVICE
     Indication: TYPE 2 DIABETES MELLITUS
  2. LANTUS SOLOSTAR [Suspect]
     Active Substance: INSULIN GLARGINE
     Indication: TYPE 2 DIABETES MELLITUS
     Dosage: DOSE:12 UNIT(S)
     Route: 051

REACTIONS (8)
  - Dizziness [Unknown]
  - Somnolence [Not Recovered/Not Resolved]
  - Pain in extremity [Unknown]
  - Malaise [Not Recovered/Not Resolved]
  - Device use issue [Unknown]
  - Amnesia [Unknown]
  - Injection site bruising [Unknown]
  - Fall [Unknown]
